FAERS Safety Report 16122875 (Version 1)
Quarter: 2019Q1

REPORT INFORMATION
  Report Type: Report from Study
  Country: None (occurrence: US)
  Receive Date: 20190327
  Receipt Date: 20190327
  Transmission Date: 20190418
  Serious: Yes (Other)
  Sender: FDA-Public Use
  Company Number: US-ABBVIE-18K-163-2541769-00

PATIENT
  Age: 66 Year
  Sex: Male

DRUGS (1)
  1. HUMIRA [Suspect]
     Active Substance: ADALIMUMAB
     Indication: RHEUMATOID ARTHRITIS
     Route: 058
     Dates: start: 2013

REACTIONS (11)
  - Coronary artery occlusion [Unknown]
  - Renal function test abnormal [Unknown]
  - Nerve compression [Unknown]
  - Herpes zoster [Unknown]
  - Knee arthroplasty [Unknown]
  - Cough [Not Recovered/Not Resolved]
  - Pleural effusion [Unknown]
  - Sciatica [Not Recovered/Not Resolved]
  - Cardiomegaly [Unknown]
  - Knee arthroplasty [Recovered/Resolved]
  - Myocardial infarction [Recovered/Resolved]

NARRATIVE: CASE EVENT DATE: 201806
